FAERS Safety Report 8138393-4 (Version None)
Quarter: 2012Q1

REPORT INFORMATION
  Report Type: 
  Country: None (occurrence: None)
  Receive Date: 20120215
  Receipt Date: 20120131
  Transmission Date: 20120608
  Serious: Yes (Other)
  Sender: FDA-Public Use
  Company Number: US-ROCHE-1034519

PATIENT
  Sex: Female
  Weight: 79.904 kg

DRUGS (13)
  1. VICODIN [Concomitant]
     Indication: PAIN
  2. LORAZEPAM [Concomitant]
     Indication: ANXIETY
  3. PREDNISONE TAB [Concomitant]
  4. LEVOTHYROXINE SODIUM [Concomitant]
  5. PROZAC [Concomitant]
  6. METHOTREXATE [Concomitant]
  7. LIPITOR [Concomitant]
  8. ACTEMRA [Suspect]
     Indication: RHEUMATOID ARTHRITIS
     Route: 042
     Dates: start: 20120112
  9. ASPIRIN [Concomitant]
  10. FLUOXETINE [Concomitant]
  11. FOLIC ACID [Concomitant]
  12. WELLBUTRIN [Concomitant]
  13. PREDNISONE TAB [Concomitant]
     Dosage: PREDNISOLONE ACETATE 1%

REACTIONS (3)
  - DERMATITIS [None]
  - WHITE BLOOD CELL COUNT DECREASED [None]
  - ULCERATIVE KERATITIS [None]
